FAERS Safety Report 15264045 (Version 1)
Quarter: 2018Q3

REPORT INFORMATION
  Report Type: Spontaneous
  Country: US (occurrence: US)
  Receive Date: 20180720
  Receipt Date: 20180720
  Transmission Date: 20181010
  Serious: Yes (Hospitalization)
  Sender: FDA-Public Use
  Company Number: None

PATIENT
  Age: 15 Year
  Sex: Female
  Weight: 79.3 kg

DRUGS (6)
  1. VINCRISTINE SULFATE. [Suspect]
     Active Substance: VINCRISTINE SULFATE
     Dates: end: 20180621
  2. PREDNISONE. [Suspect]
     Active Substance: PREDNISONE
     Dates: end: 20180627
  3. ONCASPAR [Suspect]
     Active Substance: PEGASPARGASE
     Dates: end: 20180603
  4. CYTARABINE. [Suspect]
     Active Substance: CYTARABINE
     Dates: end: 20180531
  5. METHOTREXATE. [Suspect]
     Active Substance: METHOTREXATE
     Dates: end: 20180607
  6. DAUNORUBICIN [Suspect]
     Active Substance: DAUNORUBICIN
     Dates: end: 20180621

REACTIONS (13)
  - Anaemia [None]
  - Rectal haemorrhage [None]
  - Rectal perforation [None]
  - Anxiety [None]
  - Thrombocytopenia [None]
  - Rectal fissure [None]
  - Diabetes mellitus [None]
  - Constipation [None]
  - Coagulopathy [None]
  - Proctitis [None]
  - Vaginal discharge [None]
  - Tachycardia [None]
  - Contusion [None]

NARRATIVE: CASE EVENT DATE: 20180628
